FAERS Safety Report 13204996 (Version 2)
Quarter: 2017Q1

REPORT INFORMATION
  Report Type: Report from Study
  Country: US (occurrence: US)
  Receive Date: 20170209
  Receipt Date: 20170215
  Transmission Date: 20170428
  Serious: Yes (Life-Threatening, Hospitalization)
  Sender: FDA-Public Use
  Company Number: US-PFIZER INC-2017050059

PATIENT
  Age: 16 Year
  Sex: Female
  Weight: 57 kg

DRUGS (12)
  1. HYDREA [Concomitant]
     Active Substance: HYDROXYUREA
     Indication: SICKLE CELL ANAEMIA
     Dosage: 1500 MG, QD
     Route: 048
     Dates: start: 20140826
  2. MIRALAX [Concomitant]
     Active Substance: POLYETHYLENE GLYCOL 3350
     Indication: FAECES SOFT
     Dosage: 17 G, QD
     Route: 048
     Dates: start: 20150602, end: 20170202
  3. NORCO [Concomitant]
     Active Substance: ACETAMINOPHEN\HYDROCODONE BITARTRATE
     Indication: SICKLE CELL ANAEMIA WITH CRISIS
     Dosage: [HYDROCODONE BITARTRATE 10 MG]/[PARACETAMOL 325 MG], Q4-6 HOURS PRN
     Route: 048
     Dates: start: 20150901, end: 20170201
  4. PF-06460031 [Suspect]
     Active Substance: RIVIPANSEL
     Indication: SICKLE CELL ANAEMIA WITH CRISIS
     Dosage: 840 MG, 2X/DAY (BID)
     Route: 042
     Dates: start: 20161026, end: 20161029
  5. MOTRIN [Concomitant]
     Active Substance: IBUPROFEN
     Indication: SICKLE CELL ANAEMIA WITH CRISIS
     Dosage: 600 MG, Q8 HOURS PRN
     Route: 048
     Dates: start: 20150602, end: 20170202
  6. ALBUTEROL SULFATE. [Concomitant]
     Active Substance: ALBUTEROL SULFATE
     Indication: RESTRICTIVE PULMONARY DISEASE
     Dosage: 90 UG, Q4-6 HRS PRN
     Route: 055
     Dates: start: 20160209
  7. QVAR [Concomitant]
     Active Substance: BECLOMETHASONE DIPROPIONATE
     Indication: RESTRICTIVE PULMONARY DISEASE
     Dosage: 40 MCG, QD
     Route: 055
     Dates: start: 20150804, end: 20170202
  8. MS CONTIN [Concomitant]
     Active Substance: MORPHINE SULFATE
     Indication: SICKLE CELL ANAEMIA
     Dosage: 15 MG, Q4-6 HOURS PRN
     Route: 048
     Dates: start: 20150602, end: 20170202
  9. PENICILLIN VK [Concomitant]
     Active Substance: PENICILLIN V POTASSIUM
     Indication: INFECTION PROPHYLAXIS
     Dosage: 250 MG, BID
     Route: 048
     Dates: start: 20140211
  10. DEPO-PROVERA [Concomitant]
     Active Substance: MEDROXYPROGESTERONE ACETATE
     Indication: CONTRACEPTION
     Dosage: UNK MG, Q MONTH
  11. DROXIA [Concomitant]
     Active Substance: HYDROXYUREA
     Indication: SICKLE CELL ANAEMIA
     Dosage: 200 MG, QD
     Route: 048
     Dates: start: 20160209
  12. FOLATE [Concomitant]
     Active Substance: FOLATE SODIUM
     Indication: SICKLE CELL ANAEMIA
     Dosage: 1 MG, QD
     Route: 048
     Dates: start: 20140211

REACTIONS (2)
  - Sinusitis [Recovering/Resolving]
  - Sickle cell anaemia with crisis [Unknown]

NARRATIVE: CASE EVENT DATE: 20170201
